FAERS Safety Report 18475423 (Version 1)
Quarter: 2020Q4

REPORT INFORMATION
  Report Type: Spontaneous
  Country: US (occurrence: US)
  Receive Date: 20201106
  Receipt Date: 20201106
  Transmission Date: 20210114
  Serious: Yes (Other)
  Sender: FDA-Public Use
  Company Number: US-PURDUE-USA-2020-0173039

PATIENT
  Sex: Male

DRUGS (5)
  1. OXYCODONE HYDROCHLORIDE. [Suspect]
     Active Substance: OXYCODONE HYDROCHLORIDE
     Indication: PAIN
     Route: 048
  2. OXYCODONE/ ACETAMINOPHEN TABLETS [Suspect]
     Active Substance: ACETAMINOPHEN\OXYCODONE HYDROCHLORIDE
     Indication: PAIN
     Dosage: UNK
     Route: 048
  3. OXYCONTIN [Suspect]
     Active Substance: OXYCODONE HYDROCHLORIDE
     Indication: PAIN
     Dosage: UNK
     Route: 048
     Dates: start: 2010
  4. OXYCODONE HCL CR TABLETS (SIMILAR TO NDA 22-272) [Suspect]
     Active Substance: OXYCODONE HYDROCHLORIDE
     Indication: PAIN
     Route: 048
  5. TRAMADOL. [Suspect]
     Active Substance: TRAMADOL
     Indication: PAIN
     Dosage: UNK
     Route: 065

REACTIONS (21)
  - Dry mouth [Unknown]
  - Jaw disorder [Unknown]
  - Anxiety [Unknown]
  - Intellectual disability [Unknown]
  - Toothache [Unknown]
  - Pain in jaw [Unknown]
  - Memory impairment [Unknown]
  - Denture wearer [Unknown]
  - Dental caries [Unknown]
  - Intentional self-injury [Unknown]
  - Drug withdrawal syndrome [Unknown]
  - Mental impairment [Unknown]
  - Drug dependence [Unknown]
  - Cerebral disorder [Unknown]
  - Pain [Unknown]
  - Affect lability [Unknown]
  - Disturbance in attention [Unknown]
  - Illness [Unknown]
  - Dental implantation [Unknown]
  - Tooth extraction [Unknown]
  - Insomnia [Unknown]

NARRATIVE: CASE EVENT DATE: 2015
